FAERS Safety Report 24977887 (Version 3)
Quarter: 2025Q3

REPORT INFORMATION
  Report Type: Spontaneous
  Country: US (occurrence: US)
  Receive Date: 20250217
  Receipt Date: 20250829
  Transmission Date: 20251020
  Serious: No
  Sender: PFIZER
  Company Number: US-PFIZER INC-202500035844

PATIENT
  Age: 75 Year
  Sex: Male

DRUGS (2)
  1. BOSULIF [Suspect]
     Active Substance: BOSUTINIB MONOHYDRATE
     Indication: Chronic myeloid leukaemia
     Dosage: 400 MG, 1X/DAY, (TAKE 1 TABLET BY MOUTH IN THE MORNING)
     Route: 048
  2. BOSULIF [Suspect]
     Active Substance: BOSUTINIB MONOHYDRATE
     Dosage: 200 MG, 1X/DAY (TAKE 2 TABLETS (200 MG TOTAL) BY MOUTH ONCE DAILY WITH FOOD)
     Route: 048

REACTIONS (3)
  - White blood cell count decreased [Unknown]
  - Blood creatinine increased [Unknown]
  - Circumstance or information capable of leading to medication error [Unknown]
